FAERS Safety Report 7982331-1 (Version None)
Quarter: 2011Q4

REPORT INFORMATION
  Report Type: 
  Country: None (occurrence: None)
  Receive Date: 20111214
  Receipt Date: 20111214
  Transmission Date: 20120403
  Serious: Yes (Hospitalization)
  Sender: FDA-Public Use
  Company Number: None

PATIENT
  Sex: Female
  Weight: 54 kg

DRUGS (3)
  1. MULTI-VITAMINS [Concomitant]
  2. BELATACEPT 250 MG. VIALS BRISTOL-MYERS SQUIBB [Suspect]
     Indication: IMMUNOSUPPRESSION
     Dosage: 5 MG/KG
     Dates: start: 20100212
  3. RAPAMUNE [Concomitant]

REACTIONS (9)
  - PYREXIA [None]
  - PHOTOPHOBIA [None]
  - HYPERHIDROSIS [None]
  - ESCHERICHIA TEST POSITIVE [None]
  - HEADACHE [None]
  - COMPLICATIONS OF TRANSPLANT SURGERY [None]
  - CHILLS [None]
  - BACK PAIN [None]
  - MENINGITIS BACTERIAL [None]
